FAERS Safety Report 9693464 (Version 1)
Quarter: 2013Q4

REPORT INFORMATION
  Report Type: Spontaneous
  Country: FR (occurrence: FR)
  Receive Date: 20131118
  Receipt Date: 20131118
  Transmission Date: 20140711
  Serious: Yes (Hospitalization)
  Sender: FDA-Public Use
  Company Number: FR-PFIZER INC-2013324616

PATIENT
  Age: 67 Year
  Sex: Female

DRUGS (11)
  1. NEURONTIN [Suspect]
     Indication: NEUROPATHY PERIPHERAL
     Dosage: 300 MG, 1X/DAY
     Route: 048
     Dates: end: 20131003
  2. TAHOR [Suspect]
     Dosage: 20 MG, 1X/DAY
     Route: 048
     Dates: end: 20131003
  3. GLUCOPHAGE [Concomitant]
     Dosage: 1000 MG, UNK
  4. DIAMICRON [Concomitant]
  5. VICTOZA [Concomitant]
     Dosage: 6 MG/ML
  6. LERCAN [Concomitant]
     Dosage: 10 MG, UNK
  7. KARDEGIC [Concomitant]
     Dosage: 160 MG, UNK
     Route: 048
  8. DAFALGAN [Concomitant]
  9. HYZAAR [Concomitant]
     Dosage: 50 MG/12.5 MG
  10. FORLAX [Concomitant]
     Dosage: UNK
  11. DUROGESIC [Concomitant]
     Dosage: 12 MG/HOUR (2.1 MG/5.25 CM2)
     Route: 062

REACTIONS (2)
  - Hepatocellular injury [Recovering/Resolving]
  - Sciatica [Unknown]
